FAERS Safety Report 13988229 (Version 1)
Quarter: 2017Q3

REPORT INFORMATION
  Report Type: Spontaneous
  Country: US (occurrence: US)
  Receive Date: 20170919
  Receipt Date: 20170919
  Transmission Date: 20171128
  Serious: Yes (Other)
  Sender: FDA-Public Use
  Company Number: US-TEVA-807364USA

PATIENT
  Sex: Male

DRUGS (2)
  1. ALENDRONATE SODIUM. [Suspect]
     Active Substance: ALENDRONATE SODIUM
     Indication: OSTEOPENIA
     Dates: start: 20170611, end: 20170910
  2. MESTINON [Interacting]
     Active Substance: PYRIDOSTIGMINE BROMIDE
     Route: 065

REACTIONS (4)
  - Diplopia [Unknown]
  - Drug interaction [Unknown]
  - Facial paresis [Unknown]
  - Myasthenia gravis [Unknown]

NARRATIVE: CASE EVENT DATE: 20170627
